FAERS Safety Report 9293182 (Version 2)
Quarter: 2013Q2

REPORT INFORMATION
  Report Type: Spontaneous
  Country: US (occurrence: US)
  Receive Date: 20130516
  Receipt Date: 20130528
  Transmission Date: 20140414
  Serious: Yes (Hospitalization)
  Sender: FDA-Public Use
  Company Number: US-BAXTER-2013BAX018182

PATIENT
  Sex: Female

DRUGS (2)
  1. 0.9% SODIUM CHLORIDE INJECTION [Suspect]
     Indication: HAEMODIALYSIS
     Route: 010
  2. 0.9% SODIUM CHLORIDE INJECTION [Suspect]
     Indication: RENAL FAILURE CHRONIC

REACTIONS (1)
  - Peritoneal dialysis complication [Recovered/Resolved]
